FAERS Safety Report 5141052-3 (Version None)
Quarter: 2006Q4

REPORT INFORMATION
  Report Type: 
  Country: None (occurrence: None)
  Receive Date: 20061026
  Receipt Date: 20060905
  Transmission Date: 20070319
  Serious: Yes (Other)
  Sender: FDA-Public Use
  Company Number: CHNY2006JP02856

PATIENT
  Age: 41 Year
  Sex: Male

DRUGS (1)
  1. TAVEGIL (NCH) (CLEMASTINE HYDROGEN FUMARATE) TABLET [Suspect]
     Dosage: 1 DF, ORAL
     Route: 048
     Dates: start: 20060902

REACTIONS (4)
  - DIZZINESS [None]
  - MOVEMENT DISORDER [None]
  - NAUSEA [None]
  - VOMITING [None]
